FAERS Safety Report 8116622-0 (Version None)
Quarter: 2012Q1

REPORT INFORMATION
  Report Type: 
  Country: None (occurrence: None)
  Receive Date: 20120206
  Receipt Date: 20120124
  Transmission Date: 20120608
  Serious: Yes (Hospitalization)
  Sender: FDA-Public Use
  Company Number: PHHY2012FR007278

PATIENT
  Sex: Male

DRUGS (7)
  1. GLUCOPHAGE [Concomitant]
     Indication: TYPE 2 DIABETES MELLITUS
  2. ATORVASTATIN [Concomitant]
     Indication: HYPERCHOLESTEROLAEMIA
  3. ARTESUNATE [Concomitant]
     Route: 042
  4. MODURETIC 5-50 [Concomitant]
     Indication: HYPERTENSION
  5. RIAMET [Suspect]
     Dosage: 24 TABLETS FOR 4 DAYS
     Dates: start: 20111213, end: 20111216
  6. NEBIVOLOL HCL [Concomitant]
     Indication: HYPERTENSION
  7. DIAMICRON [Concomitant]
     Indication: TYPE 2 DIABETES MELLITUS

REACTIONS (11)
  - COLD AGGLUTININS POSITIVE [None]
  - DIZZINESS [None]
  - DIARRHOEA [None]
  - C-REACTIVE PROTEIN INCREASED [None]
  - BLOOD LACTATE DEHYDROGENASE INCREASED [None]
  - HAEMOLYTIC ANAEMIA [None]
  - BODY TEMPERATURE INCREASED [None]
  - JAUNDICE [None]
  - HAEMOGLOBIN DECREASED [None]
  - GENERAL PHYSICAL HEALTH DETERIORATION [None]
  - ASTHENIA [None]
